FAERS Safety Report 10229464 (Version 1)
Quarter: 2014Q2

REPORT INFORMATION
  Report Type: Spontaneous
  Country: US (occurrence: None)
  Receive Date: 20140522
  Receipt Date: 20140522
  Transmission Date: 20141212
  Serious: Yes (Other)
  Sender: FDA-Public Use
  Company Number: 1231328

PATIENT
  Sex: Male

DRUGS (1)
  1. FUZEON [Suspect]
     Indication: HIV INFECTION
     Dosage: 180 MG (90 MG, 1 IN 12 HR),
     Route: 058
     Dates: end: 201303

REACTIONS (4)
  - Injection site erythema [None]
  - Contusion [None]
  - Contusion [None]
  - Injection site bruising [None]
